FAERS Safety Report 19466218 (Version 2)
Quarter: 2021Q4

REPORT INFORMATION
  Report Type: Spontaneous
  Country: None (occurrence: US)
  Receive Date: 20210624
  Receipt Date: 20211215
  Transmission Date: 20220303
  Serious: Yes (Other)
  Sender: FDA-Public Use
  Company Number: US-JIANGSU HENGRUI MEDICINE CO., LTD.-2113106

PATIENT
  Age: 24 Month
  Sex: Female

DRUGS (2)
  1. CYCLOPHOSPHAMIDE [Suspect]
     Active Substance: CYCLOPHOSPHAMIDE
     Indication: Leukaemia
     Route: 042
     Dates: start: 20210514
  2. THIOGUANINE [Suspect]
     Active Substance: THIOGUANINE
     Dates: start: 20210514

REACTIONS (2)
  - Hepatotoxicity [Unknown]
  - Venoocclusive disease [Recovering/Resolving]
